FAERS Safety Report 8827549 (Version 2)
Quarter: 2012Q4

REPORT INFORMATION
  Report Type: 
  Country: FR (occurrence: FR)
  Receive Date: 20121005
  Receipt Date: 20121221
  Transmission Date: 20130627
  Serious: Yes (Death, Hospitalization, Other)
  Sender: FDA-Public Use
  Company Number: FR-BRISTOL-MYERS SQUIBB COMPANY-17005695

PATIENT
  Age: 63 Year
  Sex: Male
  Weight: 78 kg

DRUGS (14)
  1. NULOJIX [Suspect]
     Dosage: Lsat dose:18Sep12
     Dates: start: 20120118
  2. CORTANCYL [Concomitant]
  3. CELLCEPT [Concomitant]
     Dosage: 1 in morning and 1 in eve
  4. PENTACARINAT [Concomitant]
     Dosage: 1 df = 1 aerosol, last dose:18Sep12
  5. ROVALCYTE [Concomitant]
  6. CARDENSIEL [Concomitant]
     Dosage: 2.5 mg:morning,1.25mg:eve
  7. LASILIX [Concomitant]
     Dosage: 1 in morning,1 in eve
  8. CORDARONE [Concomitant]
     Dosage: every day excepy sat and sun
  9. PREVISCAN [Concomitant]
     Dosage: eve
  10. OMEPRAZOLE [Concomitant]
     Dosage: eve
  11. TARDYFERON B9 [Concomitant]
  12. OROCAL D3 [Concomitant]
  13. UVEDOSE [Concomitant]
  14. ARANESP [Concomitant]

REACTIONS (6)
  - Cardiac arrest [Fatal]
  - Acute respiratory distress syndrome [Recovering/Resolving]
  - Septic shock [Fatal]
  - Lobar pneumonia [Fatal]
  - Community acquired infection [Fatal]
  - Multi-organ failure [Fatal]
